FAERS Safety Report 14940190 (Version 2)
Quarter: 2018Q3

REPORT INFORMATION
  Report Type: Spontaneous
  Country: US (occurrence: US)
  Receive Date: 20180525
  Receipt Date: 20180709
  Transmission Date: 20181010
  Serious: No
  Sender: FDA-Public Use
  Company Number: US-GLAXOSMITHKLINE-US2018089381

PATIENT
  Age: 57 Year
  Sex: Female

DRUGS (1)
  1. BENLYSTA [Suspect]
     Active Substance: BELIMUMAB
     Indication: PRODUCT USED FOR UNKNOWN INDICATION
     Dosage: 200 MG, WE
     Route: 058

REACTIONS (6)
  - Exposure via skin contact [Unknown]
  - Overdose [Unknown]
  - Product quality issue [Unknown]
  - Drug dose omission [Unknown]
  - Wrong technique in device usage process [Unknown]
  - Medication error [Unknown]

NARRATIVE: CASE EVENT DATE: 20180509
